FAERS Safety Report 9413257 (Version 2)
Quarter: 2013Q3

REPORT INFORMATION
  Report Type: Spontaneous
  Country: US (occurrence: US)
  Receive Date: 20130722
  Receipt Date: 20130731
  Transmission Date: 20140515
  Serious: Yes (Other)
  Sender: FDA-Public Use
  Company Number: US-UCBSA-092375

PATIENT
  Age: 49 Year
  Sex: Male

DRUGS (1)
  1. KEPPRA XR [Suspect]
     Indication: CONVULSION
     Dosage: STRENGTH: 750 MG 4/DAILY

REACTIONS (2)
  - Ankle fracture [Not Recovered/Not Resolved]
  - Convulsion [Unknown]
